FAERS Safety Report 11364920 (Version 3)
Quarter: 2015Q3

REPORT INFORMATION
  Report Type: Report from Study
  Country: US (occurrence: US)
  Receive Date: 20150811
  Receipt Date: 20150915
  Transmission Date: 20151125
  Serious: Yes (Hospitalization)
  Sender: FDA-Public Use
  Company Number: PHEH2015US015233

PATIENT
  Sex: Male
  Weight: 129.71 kg

DRUGS (1)
  1. GILENYA [Suspect]
     Active Substance: FINGOLIMOD HYDROCHLORIDE
     Indication: MULTIPLE SCLEROSIS
     Dosage: 0.5 MG, QD
     Route: 048
     Dates: start: 20141211

REACTIONS (9)
  - Fatigue [Recovering/Resolving]
  - Spinal cord disorder [Recovering/Resolving]
  - Malaise [Recovering/Resolving]
  - Paraesthesia [Recovering/Resolving]
  - Heat exhaustion [Recovering/Resolving]
  - Hemiparesis [Recovering/Resolving]
  - Somnolence [Recovering/Resolving]
  - Multiple sclerosis relapse [Recovering/Resolving]
  - Myalgia [Recovering/Resolving]
